FAERS Safety Report 7495464-3 (Version None)
Quarter: 2011Q2

REPORT INFORMATION
  Report Type: 
  Country: None (occurrence: None)
  Receive Date: 20110513
  Receipt Date: 20110505
  Transmission Date: 20111010
  Serious: Yes (Other)
  Sender: FDA-Public Use
  Company Number: 2011SP014637

PATIENT
  Age: 34 Year
  Sex: Female
  Weight: 76 kg

DRUGS (3)
  1. DESOGESTREL AND ETHINYL ESTRADIOL [Suspect]
     Indication: CONTRACEPTION
     Dosage: ;PO
     Route: 048
     Dates: start: 20030101
  2. OMEGA-3 FATTY ACIDS [Concomitant]
  3. PATOPRAZOLE [Concomitant]

REACTIONS (4)
  - HEADACHE [None]
  - BREAST DYSPLASIA [None]
  - ADIPOMASTIA [None]
  - LIBIDO DECREASED [None]
